FAERS Safety Report 12549673 (Version 6)
Quarter: 2016Q3

REPORT INFORMATION
  Report Type: Spontaneous
  Country: JP (occurrence: JP)
  Receive Date: 20160712
  Receipt Date: 20160923
  Transmission Date: 20161109
  Serious: Yes (Death, Hospitalization)
  Sender: FDA-Public Use
  Company Number: JP-ASTELLAS-2016JP011218AA

PATIENT
  Age: 66 Year
  Sex: Male
  Weight: 63 kg

DRUGS (15)
  1. TRANSAMIN [Concomitant]
     Active Substance: TRANEXAMIC ACID
     Indication: CYSTITIS HAEMORRHAGIC
     Route: 065
     Dates: start: 20160616, end: 20160623
  2. SAWACILLIN [Suspect]
     Active Substance: AMOXICILLIN
     Indication: CYSTITIS
     Route: 048
     Dates: start: 20160609, end: 20160623
  3. URSO [Concomitant]
     Active Substance: URSODIOL
     Indication: HEPATITIS ACUTE
  4. ZYTIGA [Concomitant]
     Active Substance: ABIRATERONE ACETATE
     Indication: PRODUCT USED FOR UNKNOWN INDICATION
     Dosage: UNK UNK, UNKNOWN FREQ.
     Route: 065
  5. CRAVIT [Suspect]
     Active Substance: LEVOFLOXACIN
     Indication: CYSTITIS
     Route: 048
     Dates: start: 20160526, end: 20160603
  6. PREDONINE [Concomitant]
     Active Substance: PREDNISOLONE\PREDNISOLONE ACETATE\PREDNISOLONE SODIUM SUCCINATE
     Indication: DECREASED APPETITE
     Route: 048
     Dates: start: 20150903, end: 20160622
  7. DENOTAS [Concomitant]
     Active Substance: CALCIUM CARBONATE\CHOLECALCIFEROL\MAGNESIUM CARBONATE
     Indication: PRODUCT USED FOR UNKNOWN INDICATION
     Route: 048
     Dates: start: 20151105, end: 20160627
  8. ADONA                              /00056903/ [Concomitant]
     Active Substance: CARBAZOCHROME SODIUM SULFONATE
     Indication: CYSTITIS HAEMORRHAGIC
     Route: 048
     Dates: start: 20160616, end: 20160623
  9. MUCOSTA [Concomitant]
     Active Substance: REBAMIPIDE
     Indication: CHRONIC GASTRITIS
     Route: 065
     Dates: start: 20150903, end: 20160623
  10. XTANDI [Suspect]
     Active Substance: ENZALUTAMIDE
     Indication: HORMONE-REFRACTORY PROSTATE CANCER
     Route: 048
     Dates: start: 20160512, end: 20160627
  11. GONAX [Suspect]
     Active Substance: DEGARELIX
     Indication: PROSTATE CANCER
     Route: 058
     Dates: start: 20160609, end: 20160609
  12. PREDONINE [Concomitant]
     Active Substance: PREDNISOLONE\PREDNISOLONE ACETATE\PREDNISOLONE SODIUM SUCCINATE
     Indication: URTICARIA
     Dosage: UNK UNK, UNKNOWN FREQ.
     Route: 048
     Dates: start: 20160623, end: 20160627
  13. URSO [Concomitant]
     Active Substance: URSODIOL
     Indication: HEPATIC FUNCTION ABNORMAL
     Dosage: 0.5 DF, THRICE DAILY
     Route: 048
     Dates: start: 20160623, end: 20160707
  14. RANMARK [Concomitant]
     Active Substance: DENOSUMAB
     Indication: PROSTATE CANCER
     Route: 058
     Dates: start: 20130418, end: 20160609
  15. LOXONIN [Concomitant]
     Active Substance: LOXOPROFEN SODIUM
     Indication: DYSURIA
     Route: 065
     Dates: start: 20150903, end: 20160623

REACTIONS (6)
  - Pneumonia [Fatal]
  - Hepatitis acute [Fatal]
  - Dehydration [Recovering/Resolving]
  - Gastroenteritis eosinophilic [Unknown]
  - Decreased appetite [Unknown]
  - Cystitis haemorrhagic [Unknown]

NARRATIVE: CASE EVENT DATE: 20160512
